FAERS Safety Report 7579380-4 (Version None)
Quarter: 2011Q2

REPORT INFORMATION
  Report Type: 
  Country: None (occurrence: None)
  Receive Date: 20110629
  Receipt Date: 20110616
  Transmission Date: 20111010
  Serious: Yes (Death, Hospitalization, Other)
  Sender: FDA-Public Use
  Company Number: GR-BIOGENIDEC-2011BI016259

PATIENT
  Age: 57 Year
  Sex: Female

DRUGS (1)
  1. TYSABRI [Suspect]
     Indication: PRODUCT USED FOR UNKNOWN INDICATION
     Route: 042
     Dates: start: 20080401, end: 20110412

REACTIONS (7)
  - GENERAL PHYSICAL HEALTH DETERIORATION [None]
  - MECHANICAL VENTILATION [None]
  - PROGRESSIVE MULTIFOCAL LEUKOENCEPHALOPATHY [None]
  - ATRIAL FIBRILLATION [None]
  - COMA [None]
  - PNEUMONIA [None]
  - SEPTIC SHOCK [None]
